FAERS Safety Report 9310285 (Version 2)
Quarter: 2013Q2

REPORT INFORMATION
  Report Type: Spontaneous
  Country: GB (occurrence: GB)
  Receive Date: 20130527
  Receipt Date: 20130627
  Transmission Date: 20140414
  Serious: No
  Sender: FDA-Public Use
  Company Number: PHFR2013GB001050

PATIENT
  Age: 44 Year
  Sex: Male

DRUGS (15)
  1. CLOZARIL [Suspect]
     Indication: SCHIZOPHRENIA
     Dosage: UKN
     Route: 048
     Dates: start: 20040806
  2. CLOZARIL [Suspect]
     Dosage: 150 MG, BID
     Route: 048
  3. CLOZARIL [Suspect]
     Dosage: 300 MG
     Route: 048
     Dates: start: 20120502
  4. DEPAKOTE [Concomitant]
     Indication: MOOD ALTERED
     Dosage: 1000 MG, BID
  5. DEPAKOTE [Concomitant]
     Dosage: 500 MG, UNK
  6. DEPAKOTE [Concomitant]
     Dosage: 2500 MG
     Route: 048
     Dates: start: 20120627
  7. CLONAZEPAM [Concomitant]
     Indication: ANXIOLYTIC THERAPY
     Dosage: 1 MG, QD
     Route: 048
     Dates: start: 20050613
  8. SERTRALINE [Concomitant]
     Indication: DEPRESSION
     Dosage: 50 MG, QD
     Route: 048
  9. HALOPERIDOL [Concomitant]
     Dosage: 5 MG
  10. HALOPERIDOL [Concomitant]
     Dosage: 15 MG, QD (MAXIMUM, 08 HOURLY)
     Route: 048
  11. PROCYCLIDINE [Concomitant]
     Indication: EXTRAPYRAMIDAL DISORDER
     Dosage: 5 MG, BID
  12. PROCYCLIDINE [Concomitant]
     Dosage: 10 MG, BID (MAXIMUM, 08 HOURLY)
     Route: 048
     Dates: start: 20110927
  13. LACTULOSE [Concomitant]
     Indication: CONSTIPATION
     Dosage: 10 ML
     Route: 048
  14. FYBOGEL [Concomitant]
     Indication: CONSTIPATION
     Dosage: ONE SACHET
     Route: 048
  15. IBUPROFEN [Concomitant]
     Dosage: 200 MG TO MAXIMUM OF 600 MG (08 HOURLY)
     Route: 048

REACTIONS (3)
  - Iron deficiency anaemia [Unknown]
  - Differential white blood cell count abnormal [Recovered/Resolved with Sequelae]
  - Eosinophil count increased [Unknown]
